FAERS Safety Report 8909389 (Version 1)
Quarter: 2012Q4

REPORT INFORMATION
  Report Type: Spontaneous
  Country: IT (occurrence: None)
  Receive Date: 20121107
  Receipt Date: 20121107
  Transmission Date: 20130627
  Serious: Yes (Hospitalization)
  Sender: FDA-Public Use
  Company Number: AUR-APL-2012-04688

PATIENT
  Age: 82 Year
  Sex: Male

DRUGS (6)
  1. LEVETIRACETAM [Suspect]
     Indication: DRUG USE FOR UNKNOWN INDICATION
     Dates: start: 20121002, end: 20121002
  2. LANSOX (LANSOPRAZOLE) [Concomitant]
  3. ARIXTRA (FONDAPARINUX SODIUM) [Concomitant]
  4. SANDIMMUN (CICLOSPORINE) [Concomitant]
  5. SOLDESAM (DEXAMETHASONE SODIUM PHOSPHATE) [Concomitant]
  6. ISOPURAMIN (ISOPURAMIN) [Concomitant]

REACTIONS (1)
  - Epilepsy [None]
